FAERS Safety Report 9086444 (Version 1)
Quarter: 2013Q1

REPORT INFORMATION
  Report Type: Report from Study
  Country: US (occurrence: US)
  Receive Date: 20130130
  Receipt Date: 20130130
  Transmission Date: 20140127
  Serious: No
  Sender: FDA-Public Use
  Company Number: US-ABBOTT-12P-163-0985573-00

PATIENT
  Age: 62 None
  Sex: Female

DRUGS (2)
  1. HUMIRA [Suspect]
     Indication: CROHN^S DISEASE
     Route: 058
     Dates: start: 200803
  2. TOPAMAX [Concomitant]

REACTIONS (9)
  - Injection site pain [Recovered/Resolved]
  - Headache [Recovered/Resolved]
  - Injection site pustule [Unknown]
  - Injection site pain [Recovered/Resolved]
  - Crohn^s disease [Recovered/Resolved]
  - Incorrect dose administered [Recovered/Resolved]
  - Crohn^s disease [Recovered/Resolved]
  - Middle ear effusion [Not Recovered/Not Resolved]
  - Feeling abnormal [Recovered/Resolved]
